FAERS Safety Report 5554881-9 (Version None)
Quarter: 2007Q4

REPORT INFORMATION
  Report Type: 
  Country: None (occurrence: None)
  Receive Date: 20071213
  Receipt Date: 20071204
  Transmission Date: 20080405
  Serious: Yes (Life-Threatening)
  Sender: FDA-Public Use
  Company Number: US-ELI_LILLY_AND_COMPANY-US200711002015

PATIENT
  Sex: Female

DRUGS (16)
  1. CYMBALTA [Suspect]
     Indication: DEPRESSION
     Dosage: 30 MG, DAILY (1/D)
     Route: 048
     Dates: start: 20070320
  2. CYMBALTA [Suspect]
     Dosage: 60 MG, DAILY (1/D)
     Route: 048
  3. CYMBALTA [Suspect]
     Dosage: 90 MG, DAILY (1/D)
     Route: 048
     Dates: end: 20071025
  4. FLONASE [Concomitant]
     Dosage: 50 UG, UNK
  5. LORATADINE [Concomitant]
     Dosage: 10 MG, UNK
  6. ACIPHEX [Concomitant]
     Dosage: 20 MG, UNK
  7. WELLBUTRIN XL [Concomitant]
     Dosage: 300 MG, UNK
  8. TOPAMAX [Concomitant]
     Dosage: 100 MG, UNK
  9. LORAZEPAM [Concomitant]
     Dosage: 1.5 MG, UNK
  10. ADVIL                              /00109201/ [Concomitant]
     Dosage: 2-3 TIMES PER DAY
  11. CRESTOR [Concomitant]
     Dosage: 10 MG, UNK
  12. NORPACE [Concomitant]
     Dosage: UNK, AS NEEDED
  13. VITAMIN E [Concomitant]
  14. MULTI-VITAMIN [Concomitant]
  15. CALCIUM [Concomitant]
  16. GLUCOSAMINE SULFATE W/CHONDROITIN [Concomitant]

REACTIONS (1)
  - VENTRICULAR TACHYCARDIA [None]
